FAERS Safety Report 8152294-7 (Version None)
Quarter: 2012Q1

REPORT INFORMATION
  Report Type: 
  Country: None (occurrence: None)
  Receive Date: 20120214
  Receipt Date: 20120206
  Transmission Date: 20120608
  Serious: Yes (Hospitalization)
  Sender: FDA-Public Use
  Company Number: 2012SP007066

PATIENT

DRUGS (3)
  1. PEG-INTRON [Suspect]
     Indication: HEPATITIS C
  2. RIBAVIRIN [Suspect]
     Indication: HEPATITIS C
  3. PEGINTERFERON ALFA-2A [Suspect]
     Indication: HEPATITIS C

REACTIONS (22)
  - INFLUENZA LIKE ILLNESS [None]
  - SEPSIS [None]
  - THYROID DISORDER [None]
  - DEPRESSION [None]
  - PRURITUS [None]
  - RASH [None]
  - HYPERTHYROIDISM [None]
  - PANCYTOPENIA [None]
  - GASTROENTERITIS [None]
  - ALOPECIA [None]
  - GASTROINTESTINAL DISORDER [None]
  - IIIRD NERVE PARALYSIS [None]
  - PERITONEAL TUBERCULOSIS [None]
  - EMOTIONAL DISORDER [None]
  - NAUSEA [None]
  - HAEMOGLOBIN DECREASED [None]
  - SKIN REACTION [None]
  - INSOMNIA [None]
  - VOMITING [None]
  - DIARRHOEA [None]
  - PLATELET COUNT DECREASED [None]
  - URINARY TRACT INFECTION [None]
